FAERS Safety Report 8979303 (Version 5)
Quarter: 2013Q1

REPORT INFORMATION
  Report Type: Spontaneous
  Country: US (occurrence: US)
  Receive Date: 20121221
  Receipt Date: 20130117
  Transmission Date: 20140127
  Serious: No
  Sender: FDA-Public Use
  Company Number: US-PFIZER INC-2012323830

PATIENT
  Age: 58 Year
  Sex: Male
  Weight: 73 kg

DRUGS (3)
  1. PRISTIQ [Suspect]
     Indication: DEPRESSION
     Dosage: 50 MG, 1X/DAY
     Dates: start: 20121217, end: 201212
  2. PRISTIQ [Suspect]
     Dosage: 50 MG, UNK
     Dates: start: 201212
  3. XANAX [Concomitant]
     Indication: ANXIETY
     Dosage: 1 MG DAILY

REACTIONS (7)
  - Insomnia [Recovered/Resolved]
  - Fatigue [Unknown]
  - Somnolence [Unknown]
  - Asthenia [Unknown]
  - Drug ineffective [Unknown]
  - Vision blurred [Unknown]
  - Feeling abnormal [Unknown]
